FAERS Safety Report 16373849 (Version 1)
Quarter: 2019Q2

REPORT INFORMATION
  Report Type: Spontaneous
  Country: FR (occurrence: FR)
  Receive Date: 20190530
  Receipt Date: 20190530
  Transmission Date: 20190711
  Serious: Yes (Hospitalization)
  Sender: FDA-Public Use
  Company Number: FR-TEVA-2019-FR-1056583

PATIENT
  Age: 42 Year
  Sex: Female

DRUGS (2)
  1. ALPRAZOLAM. [Suspect]
     Active Substance: ALPRAZOLAM
     Indication: TOXICITY TO VARIOUS AGENTS
     Dosage: 5G
     Route: 048
     Dates: start: 20190414
  2. PARACETAMOL [Suspect]
     Active Substance: ACETAMINOPHEN
     Indication: TOXICITY TO VARIOUS AGENTS
     Dosage: 12 DF
     Route: 048
     Dates: start: 20190414

REACTIONS (1)
  - Analgesic drug level increased [Recovered/Resolved]

NARRATIVE: CASE EVENT DATE: 20190414
